FAERS Safety Report 11177172 (Version 1)
Quarter: 2015Q2

REPORT INFORMATION
  Report Type: Spontaneous
  Country: NL (occurrence: NL)
  Receive Date: 20150610
  Receipt Date: 20150610
  Transmission Date: 20150821
  Serious: Yes (Other)
  Sender: FDA-Public Use
  Company Number: NL-TOLMAR, INC.-2015NL001703

PATIENT
  Age: 86 Year
  Sex: Male

DRUGS (6)
  1. ACENOCOUMAROL [Concomitant]
     Active Substance: ACENOCOUMAROL
  2. CASODEX [Concomitant]
     Active Substance: BICALUTAMIDE
  3. MORPHINE [Concomitant]
     Active Substance: MORPHINE
  4. ELIGARD [Suspect]
     Active Substance: LEUPROLIDE ACETATE
     Indication: PROSTATE CANCER
     Dosage: UNK, CYCLIC(ONCE EVERY 6 MONTHS)
     Route: 058
     Dates: start: 20141211
  5. MONO-CEDOCARD [Concomitant]
  6. CALCIUM/VITAMIN D                  /01204201/ [Concomitant]

REACTIONS (1)
  - Terminal state [Unknown]

NARRATIVE: CASE EVENT DATE: 20141203
